FAERS Safety Report 6369636-5 (Version None)
Quarter: 2009Q3

REPORT INFORMATION
  Report Type: 
  Country: None (occurrence: None)
  Receive Date: 20090923
  Receipt Date: 20090916
  Transmission Date: 20100115
  Serious: Yes (Life-Threatening, Hospitalization)
  Sender: FDA-Public Use
  Company Number: EG-ROCHE-657308

PATIENT
  Weight: 84 kg

DRUGS (2)
  1. PEG-INTERFERON ALFA 2A (RO 25-8310) [Suspect]
     Indication: HEPATITIS C
     Route: 058
     Dates: start: 20090405
  2. RIBAVIRIN [Suspect]
     Indication: HEPATITIS C
     Dosage: FREQUENCY: DAILY
     Route: 048
     Dates: start: 20090405, end: 20090707

REACTIONS (2)
  - ANAEMIA [None]
  - DEEP VEIN THROMBOSIS [None]
